FAERS Safety Report 8736505 (Version 4)
Quarter: 2017Q2

REPORT INFORMATION
  Report Type: Spontaneous
  Country: FR (occurrence: FR)
  Receive Date: 20120822
  Receipt Date: 20170419
  Transmission Date: 20170830
  Serious: Yes (Death, Hospitalization)
  Sender: FDA-Public Use
  Company Number: FR-ROCHE-1104732

PATIENT
  Age: 34 Year
  Sex: Male

DRUGS (7)
  1. LOXAPAC [Suspect]
     Active Substance: LOXAPINE SUCCINATE
     Indication: BIPOLAR DISORDER
     Dosage: PLUS 100 DROPS WHEN NEEDED
     Route: 048
     Dates: start: 20120614, end: 20120625
  2. VALIUM [Suspect]
     Active Substance: DIAZEPAM
     Indication: BIPOLAR DISORDER
     Route: 048
     Dates: start: 201206, end: 20120625
  3. QUETIAPINE FUMARATE. [Suspect]
     Active Substance: QUETIAPINE FUMARATE
     Indication: BIPOLAR DISORDER
     Dosage: DRUG REPORTED AS XEROQUEL
     Route: 048
     Dates: start: 20120605, end: 20120625
  4. LEPTICUR [Suspect]
     Active Substance: TROPATEPINE HYDROCHLORIDE
     Indication: BIPOLAR DISORDER
     Route: 048
     Dates: start: 20120605, end: 20120625
  5. TRAMADOL. [Concomitant]
     Active Substance: TRAMADOL
     Indication: ABDOMINAL PAIN
     Route: 065
     Dates: start: 20120625
  6. MORPHINE [Concomitant]
     Active Substance: MORPHINE
     Indication: ABDOMINAL PAIN
     Route: 042
     Dates: start: 20120625
  7. DEPAKINE [Suspect]
     Active Substance: VALPROATE SODIUM
     Indication: BIPOLAR DISORDER
     Route: 048
     Dates: start: 201206, end: 20120625

REACTIONS (3)
  - Gastrointestinal necrosis [Fatal]
  - Intestinal obstruction [Fatal]
  - Intestinal ischaemia [Fatal]

NARRATIVE: CASE EVENT DATE: 20120623
